FAERS Safety Report 23841304 (Version 1)
Quarter: 2024Q2

REPORT INFORMATION
  Report Type: Spontaneous
  Country: FR (occurrence: FR)
  Receive Date: 20240510
  Receipt Date: 20240510
  Transmission Date: 20240717
  Serious: Yes (Hospitalization)
  Sender: FDA-Public Use
  Company Number: None

PATIENT
  Age: 84 Year
  Sex: Male
  Weight: 60 kg

DRUGS (13)
  1. HYDROXYUREA [Suspect]
     Active Substance: HYDROXYUREA
     Indication: Myelodysplastic syndrome
     Dosage: 3X500 MG/DAY?DAILY DOSE: 1500 MILLIGRAM
     Route: 048
     Dates: start: 20210913
  2. HYDROXYUREA [Suspect]
     Active Substance: HYDROXYUREA
     Indication: Myelodysplastic syndrome
     Dosage: (THE DOSAGE OF HYDREA VARIES BETWEEN 2 AND 3 CAPSULES PER DAY DEPENDING ON HAEMATOLOGICAL TOXICITY)
     Route: 048
  3. HYDROXYUREA [Suspect]
     Active Substance: HYDROXYUREA
     Indication: Myelodysplastic syndrome
     Dosage: HYDREA REDUCED TO 2 CAPSULES PER DAY?DAILY DOSE: 2 DOSAGE FORM
     Route: 048
  4. RUXOLITINIB [Suspect]
     Active Substance: RUXOLITINIB
     Indication: Myelodysplastic syndrome
     Dosage: DAILY DOSE: 20 MILLIGRAM
     Route: 048
     Dates: start: 20230710
  5. PREGABALIN [Concomitant]
     Active Substance: PREGABALIN
  6. LORMETAZEPAM [Concomitant]
     Active Substance: LORMETAZEPAM
  7. FUROSEMIDE [Concomitant]
     Active Substance: FUROSEMIDE
  8. POTASSIUM CHLORIDE [Concomitant]
     Active Substance: POTASSIUM CHLORIDE
  9. ESOMEPRAZOLE [Concomitant]
     Active Substance: ESOMEPRAZOLE
  10. ALLOPURINOL [Concomitant]
     Active Substance: ALLOPURINOL
  11. ATORVASTATIN [Concomitant]
     Active Substance: ATORVASTATIN
  12. Ulcar [Concomitant]
  13. FINASTERIDE [Concomitant]
     Active Substance: FINASTERIDE

REACTIONS (3)
  - Oral fungal infection [Not Recovered/Not Resolved]
  - Glossitis [Not Recovered/Not Resolved]
  - Nasopharyngitis [Unknown]

NARRATIVE: CASE EVENT DATE: 20240101
